FAERS Safety Report 17215522 (Version 1)
Quarter: 2019Q4

REPORT INFORMATION
  Report Type: Spontaneous
  Country: US (occurrence: US)
  Receive Date: 20191230
  Receipt Date: 20191230
  Transmission Date: 20200122
  Serious: No
  Sender: FDA-Public Use
  Company Number: US-MYLANLABS-2019M1127542

PATIENT
  Age: 86 Year
  Sex: Female
  Weight: 63 kg

DRUGS (2)
  1. ESTRADIOL VAGINAL CREAM USP [Suspect]
     Active Substance: ESTRADIOL
     Indication: VULVOVAGINAL PRURITUS
     Dosage: 1 GRAM TWICE A WEEK
     Route: 067
     Dates: start: 20191218
  2. ESTRADIOL VAGINAL CREAM USP [Suspect]
     Active Substance: ESTRADIOL
     Indication: VULVOVAGINAL BURNING SENSATION

REACTIONS (3)
  - Vaginal haemorrhage [Recovered/Resolved]
  - Off label use [Not Recovered/Not Resolved]
  - Blood urine present [Recovered/Resolved]

NARRATIVE: CASE EVENT DATE: 20191218
